FAERS Safety Report 14401473 (Version 3)
Quarter: 2018Q2

REPORT INFORMATION
  Report Type: Spontaneous
  Country: DE (occurrence: DE)
  Receive Date: 20180117
  Receipt Date: 20180603
  Transmission Date: 20180711
  Serious: Yes (Death, Other)
  Sender: FDA-Public Use
  Company Number: DE-TORRENT-00007625

PATIENT
  Age: 13 Year
  Sex: Male
  Weight: 40 kg

DRUGS (5)
  1. VITAMIN D [Concomitant]
     Active Substance: CHOLECALCIFEROL
     Indication: PRODUCT USED FOR UNKNOWN INDICATION
     Dates: start: 20171006
  2. MOVICOL [Concomitant]
     Active Substance: POLYETHYLENE GLYCOL 3350\POTASSIUM CHLORIDE\SODIUM BICARBONATE\SODIUM CHLORIDE
     Indication: PRODUCT USED FOR UNKNOWN INDICATION
     Dosage: 1 BEUTEL BEI BEDARF
     Route: 048
  3. OMEPRAZOL HEUMANN [Suspect]
     Active Substance: OMEPRAZOLE
     Indication: PRODUCT USED FOR UNKNOWN INDICATION
     Dosage: ABENDS 20MG ALS LANGTEITMEDIKATION
  4. PIPAMPERON [Interacting]
     Active Substance: PIPAMPERONE HYDROCHLORIDE
     Indication: AGGRESSION
     Dosage: DAILY DOSE: 60 MG MILLIGRAM(S) EVERY DAY
     Route: 048
     Dates: start: 20170801
  5. RISPERIDON [Interacting]
     Active Substance: RISPERIDONE
     Indication: AGGRESSION
     Dosage: 0.25MG-0.25MG-0.5MG
     Route: 048
     Dates: start: 20160708

REACTIONS (18)
  - Infection susceptibility increased [Fatal]
  - Sudden cardiac death [Fatal]
  - Drug interaction [Unknown]
  - Hypotonia [Fatal]
  - Growth accelerated [Unknown]
  - Sedation complication [Fatal]
  - Restlessness [Fatal]
  - Cardiac arrest [Fatal]
  - Muscle spasms [Fatal]
  - Fatigue [Unknown]
  - Conduct disorder [Unknown]
  - Off label use [Unknown]
  - Increased appetite [Fatal]
  - Arrhythmia [Unknown]
  - Dizziness [Unknown]
  - Haemoptysis [Unknown]
  - Brain oedema [Unknown]
  - Weight increased [Unknown]

NARRATIVE: CASE EVENT DATE: 2017
